FAERS Safety Report 6405658-3 (Version None)
Quarter: 2009Q4

REPORT INFORMATION
  Report Type: 
  Country: None (occurrence: None)
  Receive Date: 20091019
  Receipt Date: 20091008
  Transmission Date: 20100525
  Serious: Yes (Hospitalization)
  Sender: FDA-Public Use
  Company Number: B0597749A

PATIENT
  Sex: Female
  Weight: 108.5 kg

DRUGS (1)
  1. TOPOTECAN [Suspect]
     Dosage: 3.1MG EVERY 3 WEEKS
     Route: 042
     Dates: start: 20090914

REACTIONS (3)
  - GAIT DISTURBANCE [None]
  - GENERAL PHYSICAL HEALTH DETERIORATION [None]
  - MUSCULAR WEAKNESS [None]
